FAERS Safety Report 4971702-3 (Version None)
Quarter: 2006Q2

REPORT INFORMATION
  Report Type: 
  Country: None (occurrence: None)
  Receive Date: 20060407
  Receipt Date: 20060321
  Transmission Date: 20061013
  Serious: Yes (Other)
  Sender: FDA-Public Use
  Company Number: 0206007

PATIENT
  Age: 33 Year
  Sex: Female

DRUGS (6)
  1. DEPODUR [Suspect]
     Indication: POSTOPERATIVE ANALGESIA
     Dosage: 15 MG (1 ONCE), EPIDURAL
     Route: 008
     Dates: start: 20060316
  2. MORPHINE [Concomitant]
  3. TORADOL [Concomitant]
  4. PHENERGAN (PROMETHAZINE HYDROCHLORIDE) [Concomitant]
  5. UNSPECIFIED ANTI HYPERTENSIVE MEDICATION (UNKNOWN) [Concomitant]
  6. UNSPECIFIED ANTI DEPRESSIVE MEDICATION (UNKNOWN) [Concomitant]

REACTIONS (8)
  - CHEST PAIN [None]
  - DEEP VEIN THROMBOSIS [None]
  - HYPOAESTHESIA [None]
  - MEDICAL DEVICE COMPLICATION [None]
  - NERVE COMPRESSION [None]
  - PAIN IN EXTREMITY [None]
  - PARAESTHESIA [None]
  - PULMONARY EMBOLISM [None]
